FAERS Safety Report 23894034 (Version 1)
Quarter: 2024Q2

REPORT INFORMATION
  Report Type: Spontaneous
  Country: US (occurrence: None)
  Receive Date: 20240524
  Receipt Date: 20240524
  Transmission Date: 20240715
  Serious: No
  Sender: FDA-Public Use
  Company Number: US-ROCHE-3520302

PATIENT
  Sex: Female
  Weight: 77.18 kg

DRUGS (5)
  1. OCREVUS [Suspect]
     Active Substance: OCRELIZUMAB
     Indication: Multiple sclerosis
     Dosage: MOST RECENT DOSE ON 05/FEB/2024
     Route: 042
  2. CHOLECALCIFEROL [Concomitant]
     Active Substance: CHOLECALCIFEROL
  3. JOLESSA [Concomitant]
     Active Substance: ETHINYL ESTRADIOL\LEVONORGESTREL
  4. LISINOPRIL [Concomitant]
     Active Substance: LISINOPRIL
  5. METHOCARBAMOL [Concomitant]
     Active Substance: METHOCARBAMOL

REACTIONS (4)
  - Tachycardia [Unknown]
  - Chest discomfort [Unknown]
  - Fatigue [Unknown]
  - Malaise [Unknown]

NARRATIVE: CASE EVENT DATE: 20240205
